FAERS Safety Report 24538102 (Version 1)
Quarter: 2024Q4

REPORT INFORMATION
  Report Type: Spontaneous
  Country: US (occurrence: US)
  Receive Date: 20241023
  Receipt Date: 20241023
  Transmission Date: 20250115
  Serious: Yes (Other)
  Sender: TEVA
  Company Number: US-TEVA-VS-3254156

PATIENT
  Age: 67 Year
  Sex: Female
  Weight: 86.18 kg

DRUGS (1)
  1. CLONIDINE [Suspect]
     Active Substance: CLONIDINE
     Indication: Hypertension
     Route: 065

REACTIONS (6)
  - Tachycardia [Unknown]
  - Fluid retention [Unknown]
  - Product adhesion issue [Unknown]
  - Blood pressure increased [Unknown]
  - Weight increased [Unknown]
  - Drug dose omission by device [Unknown]
